FAERS Safety Report 6552797-2 (Version None)
Quarter: 2010Q1

REPORT INFORMATION
  Report Type: 
  Country: None (occurrence: None)
  Receive Date: 20100121
  Receipt Date: 20100106
  Transmission Date: 20100710
  Serious: Yes (Hospitalization)
  Sender: FDA-Public Use
  Company Number: KV200900440

PATIENT
  Age: 76 Year
  Sex: Female
  Weight: 65.8 kg

DRUGS (62)
  1. ISOSORBIDE MONONITRATE [Suspect]
     Indication: HEART RATE IRREGULAR
     Dosage: 30 MG, QD, ORAL
     Route: 048
     Dates: start: 20060722, end: 20090201
  2. DIGOXIN [Concomitant]
  3. OMACOR /01403701/ (OMEGA-3 MARINE TRIGLYCERIDES) [Concomitant]
  4. HYDROCHLOROTHIAZIDE [Concomitant]
  5. DICLOFENAC SODIUM [Concomitant]
  6. LEVOXYL [Concomitant]
  7. ACIPHEX [Concomitant]
  8. MULTIVITAMIN /00831701/ (VITAMINS NOS) [Concomitant]
  9. COUMADIN [Concomitant]
  10. LOVENOX [Concomitant]
  11. CYCLOBENZAPRINE [Concomitant]
  12. TRAMADOL HCL [Concomitant]
  13. MAGNESIUM (MAGNESIUM) [Concomitant]
  14. AZITHROMYCIN [Concomitant]
  15. LYRICA [Concomitant]
  16. CYMBALTA [Concomitant]
  17. AMBIEN [Concomitant]
  18. ASTELIN /00884002/ (AZELASTINE HYDROCHLORIDE) [Concomitant]
  19. ATENOLOL [Concomitant]
  20. BIOTIN W/FOLIC/NIACINAMIDE/VITB NOS/VITC/VITE (ASCORBIC ACID, BIOTIN, [Concomitant]
  21. CALCIUM (CALCIUM) [Concomitant]
  22. GLUCOSAMINE W/CHONDROITIN SULFATE (CHONDROITIN SULFATE, GLUCOSAMINE) [Concomitant]
  23. VITAMIN B COMPLEX /00003501/ (CALCIUM PANTOTHENATE, NICOTINAMIDE, PYRI [Concomitant]
  24. VOLTAREN /00372301/ (DICLOFENAC) [Concomitant]
  25. XOPENEX [Concomitant]
  26. OXYGEN (OXYGEN) [Concomitant]
  27. PHENERGAN /00033001/ (PROMETHAZINE) [Concomitant]
  28. NADOLOL [Concomitant]
  29. ACEBUTOLOL [Concomitant]
  30. BENADRYL [Concomitant]
  31. LOVAZA [Concomitant]
  32. ZYRTEC [Concomitant]
  33. NEURONTIN [Concomitant]
  34. DIOVAN [Concomitant]
  35. RANITIDINE [Concomitant]
  36. NEXIUM [Concomitant]
  37. TRILYTE (POLYETHYLENE GLYCOL 3350, POTASSIUM CHLORIDE, SODIUM BICARBON [Concomitant]
  38. PREDNISONE [Concomitant]
  39. MECLIZINE HYDROCHLORDIE (MECLIZINE HYDROCHLORIDE) [Concomitant]
  40. PROPOXYPHENE HCL [Concomitant]
  41. NITROQUICK (GLYCERYL TRINITRATE) [Concomitant]
  42. FINACEA [Concomitant]
  43. BENZONATATE [Concomitant]
  44. CEFDINIR [Concomitant]
  45. AMMONIUM LACTATE (AMMONIUM LACTATE) [Concomitant]
  46. DICYCLOMINE /00068601/ (DICYCLOVERINE) [Concomitant]
  47. EFFEXOR /01233801/ (VENLAFAXINE) [Concomitant]
  48. PROMETHAZINE [Concomitant]
  49. POLYETHYLENE GLYCOL (PROMETHAZINE) [Concomitant]
  50. POLYETHYLENE GLYCOL [Concomitant]
  51. TOPROL-XL [Concomitant]
  52. LUXIQ [Concomitant]
  53. MUPIROCIN [Concomitant]
  54. LOCOID [Concomitant]
  55. SUCRALFATE [Concomitant]
  56. CARBAMAZEPINE [Concomitant]
  57. PHENAZOPYRIDINE (PHENAZOPYRIDINE) [Concomitant]
  58. NITROFURANTOIN [Concomitant]
  59. FOLTX (CYANCOOBALAMIN, FOLIC ACID, PYRIDOXINE HYDROCHLORIDE) [Concomitant]
  60. OMNICEF /00497602/ (CEFOTAXIME SODIUM) [Concomitant]
  61. KLARON (SULFACETAMIDE SODIUM) [Concomitant]
  62. HALFLYTELY (MACROGOL, POTASSIUM CHLORIDE, SODIUM BICARBONATE) [Concomitant]

REACTIONS (77)
  - ABDOMINAL PAIN [None]
  - ACTINIC KERATOSIS [None]
  - ARRHYTHMIA [None]
  - ARTHRALGIA [None]
  - ASTHENIA [None]
  - ATRIAL FIBRILLATION [None]
  - BACK PAIN [None]
  - BRACHIAL PLEXOPATHY [None]
  - BRADYCARDIA [None]
  - BURSITIS [None]
  - CHEST DISCOMFORT [None]
  - CHILLS [None]
  - CHRONOTROPIC INCOMPETENCE [None]
  - COLITIS ISCHAEMIC [None]
  - CONSTIPATION [None]
  - COUGH [None]
  - CYANOSIS [None]
  - DIARRHOEA [None]
  - DIZZINESS [None]
  - DRUG EFFECT DECREASED [None]
  - DRUG ERUPTION [None]
  - DYSPNOEA [None]
  - DYSPNOEA EXERTIONAL [None]
  - DYSURIA [None]
  - EYE PAIN [None]
  - FALL [None]
  - FATIGUE [None]
  - FEELING OF BODY TEMPERATURE CHANGE [None]
  - FLUID RETENTION [None]
  - GROIN PAIN [None]
  - HAEMATOCHEZIA [None]
  - HEADACHE [None]
  - HEART RATE DECREASED [None]
  - HYPERHIDROSIS [None]
  - HYPERLIPIDAEMIA [None]
  - HYPERSOMNIA [None]
  - HYPERTENSION [None]
  - HYPOAESTHESIA [None]
  - HYPOTENSION [None]
  - INFLAMMATION [None]
  - INTESTINAL ISCHAEMIA [None]
  - ISCHAEMIC HEPATITIS [None]
  - LACERATION [None]
  - LIMB DISCOMFORT [None]
  - MIDDLE INSOMNIA [None]
  - MUSCLE SPASMS [None]
  - MUSCULAR WEAKNESS [None]
  - MUSCULOSKELETAL PAIN [None]
  - MYCOPLASMA INFECTION [None]
  - MYOPATHY [None]
  - NAUSEA [None]
  - NEURALGIA [None]
  - NOCTURIA [None]
  - NODULE [None]
  - OEDEMA [None]
  - OVERDOSE [None]
  - PAIN [None]
  - PAIN IN EXTREMITY [None]
  - PALPITATIONS [None]
  - PARAESTHESIA [None]
  - PERIPHERAL COLDNESS [None]
  - PNEUMONIA [None]
  - POLLAKIURIA [None]
  - PRESYNCOPE [None]
  - PYREXIA [None]
  - RASH ERYTHEMATOUS [None]
  - RECTAL HAEMORRHAGE [None]
  - RHINORRHOEA [None]
  - SICK SINUS SYNDROME [None]
  - SPEECH DISORDER [None]
  - SYNCOPE [None]
  - TRIGGER FINGER [None]
  - UPPER RESPIRATORY TRACT INFECTION [None]
  - URINARY HESITATION [None]
  - VOMITING [None]
  - WEIGHT INCREASED [None]
  - WHEEZING [None]
